FAERS Safety Report 7226819-X (Version None)
Quarter: 2011Q1

REPORT INFORMATION
  Report Type: 
  Country: None (occurrence: None)
  Receive Date: 20110105
  Receipt Date: 20101229
  Transmission Date: 20110831
  Serious: Yes (Hospitalization, Other)
  Sender: FDA-Public Use
  Company Number: 2010SP016445

PATIENT
  Age: 33 Year
  Sex: Female

DRUGS (1)
  1. NUVARING [Suspect]
     Indication: PRODUCT USED FOR UNKNOWN INDICATION
     Dates: start: 20060417, end: 20080301

REACTIONS (7)
  - BLOOD UREA INCREASED [None]
  - BLOOD CREATININE INCREASED [None]
  - PULMONARY EMBOLISM [None]
  - PHARYNGITIS [None]
  - BLOOD PRESSURE SYSTOLIC INCREASED [None]
  - TENDONITIS [None]
  - DEEP VEIN THROMBOSIS [None]
